FAERS Safety Report 23465806 (Version 1)
Quarter: 2024Q1

REPORT INFORMATION
  Report Type: Spontaneous
  Country: US (occurrence: None)
  Receive Date: 20240131
  Receipt Date: 20240131
  Transmission Date: 20240410
  Serious: Yes (Other)
  Sender: FDA-Public Use
  Company Number: None

PATIENT
  Age: 72 Year
  Sex: Female
  Weight: 63.9 kg

DRUGS (6)
  1. IBANDRONATE SODIUM [Suspect]
     Active Substance: IBANDRONATE SODIUM
     Indication: Bone loss
     Dosage: OTHER QUANTITY : 1 TABLET(S);?OTHER FREQUENCY : ONE TABLET MONTHLY;?
     Route: 048
     Dates: start: 20240130, end: 20240131
  2. Citalopram, [Concomitant]
  3. EZETIMIBE [Concomitant]
     Active Substance: EZETIMIBE
  4. CALCIUM [Concomitant]
     Active Substance: CALCIUM
  5. VITAMIN D3 [Concomitant]
     Active Substance: CHOLECALCIFEROL
  6. MULTI [Concomitant]

REACTIONS (11)
  - Musculoskeletal chest pain [None]
  - Spinal pain [None]
  - Chest pain [None]
  - Pain [None]
  - Diarrhoea [None]
  - Dyspnoea [None]
  - Sitting disability [None]
  - Dysstasia [None]
  - Movement disorder [None]
  - Incontinence [None]
  - Back pain [None]

NARRATIVE: CASE EVENT DATE: 20240130
